FAERS Safety Report 12488702 (Version 1)
Quarter: 2016Q2

REPORT INFORMATION
  Report Type: Spontaneous
  Country: NO (occurrence: NO)
  Receive Date: 20160622
  Receipt Date: 20160622
  Transmission Date: 20160815
  Serious: Yes (Other)
  Sender: FDA-Public Use
  Company Number: NO-AMGEN-NORSP2016077692

PATIENT
  Age: 77 Year
  Sex: Male

DRUGS (5)
  1. ZYTIGA [Concomitant]
     Active Substance: ABIRATERONE ACETATE
  2. ZOLADEX [Concomitant]
     Active Substance: GOSERELIN ACETATE
  3. MAREVAN [Concomitant]
     Active Substance: WARFARIN SODIUM
  4. PREDNISOLON [Concomitant]
     Active Substance: PREDNISOLONE
  5. XGEVA [Suspect]
     Active Substance: DENOSUMAB
     Indication: PRODUCT USED FOR UNKNOWN INDICATION
     Dosage: UNK
     Route: 058
     Dates: start: 201212, end: 20131001

REACTIONS (3)
  - Osteonecrosis of jaw [Recovering/Resolving]
  - Osteitis [Recovering/Resolving]
  - Exposed bone in jaw [Recovered/Resolved]

NARRATIVE: CASE EVENT DATE: 201304
